FAERS Safety Report 15276012 (Version 3)
Quarter: 2019Q2

REPORT INFORMATION
  Report Type: Not Available
  Country: FR (occurrence: FR)
  Receive Date: 20180814
  Receipt Date: 20190516
  Transmission Date: 20190711
  Serious: Yes (Hospitalization, Other)
  Sender: FDA-Public Use
  Company Number: FR-CELGENEUS-FRA-20180802187

PATIENT
  Sex: Male
  Weight: 72 kg

DRUGS (9)
  1. LEDERFOLINE [Concomitant]
     Active Substance: LEUCOVORIN CALCIUM
     Indication: PRODUCT USED FOR UNKNOWN INDICATION
     Route: 048
     Dates: start: 20180307
  2. DEXAMETHASONE ORAL [Concomitant]
     Active Substance: DEXAMETHASONE
     Indication: PLASMA CELL MYELOMA
     Route: 048
     Dates: start: 20180206
  3. LOVENOX [Concomitant]
     Active Substance: ENOXAPARIN SODIUM
     Indication: THROMBOSIS PROPHYLAXIS
     Route: 058
     Dates: start: 20180307
  4. ZELITREX [Concomitant]
     Active Substance: VALACYCLOVIR HYDROCHLORIDE
     Indication: PRODUCT USED FOR UNKNOWN INDICATION
     Route: 048
     Dates: start: 20180307
  5. LANSOPRAZOLE. [Concomitant]
     Active Substance: LANSOPRAZOLE
     Indication: PRODUCT USED FOR UNKNOWN INDICATION
     Route: 048
     Dates: start: 20180307
  6. REVLIMID [Suspect]
     Active Substance: LENALIDOMIDE
     Indication: PLASMA CELL MYELOMA
     Route: 048
     Dates: start: 20180206
  7. IXAZOMIB [Suspect]
     Active Substance: IXAZOMIB
     Indication: PLASMA CELL MYELOMA
     Route: 048
     Dates: start: 20180206
  8. AMOXICILLIN. [Concomitant]
     Active Substance: AMOXICILLIN
     Indication: PRODUCT USED FOR UNKNOWN INDICATION
     Route: 048
     Dates: start: 20180307
  9. BACTRIM [Concomitant]
     Active Substance: SULFAMETHOXAZOLE\TRIMETHOPRIM
     Indication: PRODUCT USED FOR UNKNOWN INDICATION
     Route: 048
     Dates: start: 20180307

REACTIONS (6)
  - Spinal cord infection [Recovered/Resolved]
  - Spinal cord compression [Recovered/Resolved]
  - Weight decreased [Unknown]
  - Haemodynamic instability [Recovered/Resolved]
  - Pseudomonal bacteraemia [Recovered/Resolved]
  - Plasma cell myeloma [Unknown]

NARRATIVE: CASE EVENT DATE: 20180308
